FAERS Safety Report 8048624-7 (Version None)
Quarter: 2012Q1

REPORT INFORMATION
  Report Type: 
  Country: None (occurrence: None)
  Receive Date: 20120110
  Receipt Date: 20111230
  Transmission Date: 20120608
  Serious: Yes (Hospitalization, Other)
  Sender: FDA-Public Use
  Company Number: AUR-APL-2012-00329

PATIENT
  Age: 78 Year
  Sex: Male
  Weight: 84.5 kg

DRUGS (30)
  1. OXYCODONE HCL [Suspect]
     Indication: ANALGESIC THERAPY
  2. MORPHINE SULFATE INJ [Suspect]
     Indication: ANALGESIC THERAPY
     Dosage: INTRAVENOUS
     Route: 042
  3. NAPROXEN [Concomitant]
  4. SIMVASTATIN [Concomitant]
  5. ERGOCALCIFEROL [Concomitant]
  6. FERROUS SULFATE TAB [Concomitant]
  7. VARDENAFIL (VARDENAFIL) [Concomitant]
  8. ACETAMINOPHEN AND OXYCODONE HCL [Suspect]
     Indication: ANALGESIC THERAPY
  9. DIPHENHYDRAMINE HCL [Suspect]
     Indication: PRODUCT USED FOR UNKNOWN INDICATION
  10. ACETAMINOPHEN W/HYDROCODONE BITARTRATE (VICODIN) [Concomitant]
  11. LISINOPRIL [Concomitant]
  12. GABAPENTIN [Suspect]
     Indication: PRODUCT USED FOR UNKNOWN INDICATION
     Dosage: (100 MG)
  13. DESIPRAMINE HCL [Suspect]
     Indication: PRODUCT USED FOR UNKNOWN INDICATION
     Dosage: (50 MG)
  14. ALLOPURINOL [Concomitant]
  15. COLCHICINE [Concomitant]
  16. DOCUSATE (DOCUSATE) [Concomitant]
  17. OMEPRAZOLE [Concomitant]
  18. ASPIRIN [Concomitant]
  19. ACETAMINOPHEN [Concomitant]
  20. BACLOFEN [Concomitant]
  21. FUROSEMIDE [Suspect]
     Indication: PRODUCT USED FOR UNKNOWN INDICATION
     Dosage: (20 MG)
  22. CINACALCET HYDROCHLORIDE [Concomitant]
  23. CLONIDINE [Concomitant]
  24. FINASTERIDE [Concomitant]
  25. RANITIDINE HYDROCHLORIDE [Concomitant]
  26. METFORMIN HCL [Suspect]
     Indication: PRODUCT USED FOR UNKNOWN INDICATION
     Dosage: (1000 MG)
  27. CIPROFLOXACIN [Suspect]
     Indication: URINARY TRACT INFECTION
  28. CAPSAICIN (CAPSAICIN) [Concomitant]
  29. TERAZOSIN HCL [Concomitant]
  30. VITAMIN E [Concomitant]

REACTIONS (11)
  - CONFUSIONAL STATE [None]
  - WRONG DRUG ADMINISTERED [None]
  - POTENTIATING DRUG INTERACTION [None]
  - DRUG LEVEL INCREASED [None]
  - DELIRIUM [None]
  - POST PROCEDURAL COMPLICATION [None]
  - COGNITIVE DISORDER [None]
  - DEMENTIA [None]
  - AGITATION [None]
  - MENTAL STATUS CHANGES [None]
  - PROCEDURAL PAIN [None]
